FAERS Safety Report 7319777-0 (Version None)
Quarter: 2011Q1

REPORT INFORMATION
  Report Type: 
  Country: None (occurrence: None)
  Receive Date: 20110228
  Receipt Date: 20101014
  Transmission Date: 20110831
  Serious: No
  Sender: FDA-Public Use
  Company Number: A0882365A

PATIENT
  Age: 64 Year
  Sex: Female

DRUGS (4)
  1. TYLENOL [Concomitant]
  2. BUPROPION HCL [Concomitant]
  3. SYNTHROID [Concomitant]
  4. LAMICTAL [Suspect]
     Indication: BIPOLAR DISORDER
     Dosage: 200MG PER DAY
     Route: 048
     Dates: start: 20060901

REACTIONS (2)
  - ARTHROPATHY [None]
  - MUSCULAR WEAKNESS [None]
